FAERS Safety Report 4759767-5 (Version None)
Quarter: 2005Q3

REPORT INFORMATION
  Report Type: 
  Country: None (occurrence: None)
  Receive Date: 20050829
  Receipt Date: 20050721
  Transmission Date: 20060218
  Serious: No
  Sender: FDA-Public Use
  Company Number: S05-USA-03587-01

PATIENT
  Age: 46 Year
  Sex: Male

DRUGS (6)
  1. CAMPRAL [Suspect]
     Indication: ALCOHOL DETOXIFICATION
     Dosage: 666 MG TID PO
     Route: 048
     Dates: start: 20050720
  2. COCAINE (COCAINE) [Suspect]
  3. LIBRIUM ^HOFFMANN^ (CHLORDIAZEPOXIDE HYDROCHLORIDE) [Concomitant]
  4. MICARDIS [Concomitant]
  5. LOSARTAN POTASSIUM [Concomitant]
  6. THIAMINE [Concomitant]

REACTIONS (1)
  - RESPIRATORY RATE INCREASED [None]
